FAERS Safety Report 13366458 (Version 2)
Quarter: 2017Q2

REPORT INFORMATION
  Report Type: Spontaneous
  Country: US (occurrence: US)
  Receive Date: 20170323
  Receipt Date: 20170405
  Transmission Date: 20170830
  Serious: Yes (Hospitalization)
  Sender: FDA-Public Use
  Company Number: US-ALLERGAN-1710817US

PATIENT
  Sex: Male

DRUGS (3)
  1. MICARDIS [Concomitant]
     Active Substance: TELMISARTAN
     Indication: HYPERTENSION
     Dosage: UNK
  2. LUMIGAN [Suspect]
     Active Substance: BIMATOPROST
     Indication: GLAUCOMA
     Dosage: 2 GTT, QHS
     Route: 047
  3. JANUVIA [Concomitant]
     Active Substance: SITAGLIPTIN PHOSPHATE
     Indication: DIABETES MELLITUS
     Dosage: UNK

REACTIONS (4)
  - Joint injury [Not Recovered/Not Resolved]
  - Accident [Unknown]
  - Tibia fracture [Not Recovered/Not Resolved]
  - Muscle injury [Unknown]

NARRATIVE: CASE EVENT DATE: 20170308
